FAERS Safety Report 7168399-3 (Version None)
Quarter: 2010Q4

REPORT INFORMATION
  Report Type: 
  Country: None (occurrence: None)
  Receive Date: 20101216
  Receipt Date: 20100106
  Transmission Date: 20110411
  Serious: No
  Sender: FDA-Public Use
  Company Number: US-AMGEN-KDL383908

PATIENT

DRUGS (9)
  1. ENBREL [Suspect]
     Indication: PRODUCT USED FOR UNKNOWN INDICATION
     Dosage: 50 MG, QWK
     Route: 058
  2. CLONAZEPAM [Concomitant]
     Dosage: 1 MG, UNK
  3. CYCLOBENZAPRINE HCL [Concomitant]
     Dosage: 10 MG, UNK
  4. CELECOXIB [Concomitant]
     Dosage: 50 MG, UNK
  5. PAROXETINE HYDROCHLORIDE [Concomitant]
     Dosage: 10 MG, UNK
  6. LEVOTHYROXINE SODIUM [Concomitant]
     Dosage: 100 A?G, UNK
  7. CALCIUM [Concomitant]
  8. MULTITABS [Concomitant]
  9. FIORINAL [Concomitant]

REACTIONS (1)
  - HERPES ZOSTER [None]
